FAERS Safety Report 20873786 (Version 1)
Quarter: 2022Q2

REPORT INFORMATION
  Report Type: Spontaneous
  Country: US (occurrence: US)
  Receive Date: 20220525
  Receipt Date: 20220525
  Transmission Date: 20220721
  Serious: No
  Sender: FDA-Public Use
  Company Number: US-PFIZER INC-202200702402

PATIENT
  Age: 50 Year
  Sex: Female
  Weight: 79.38 kg

DRUGS (3)
  1. XANAX [Suspect]
     Active Substance: ALPRAZOLAM
     Indication: Panic attack
     Dosage: 1 MG (FOUR TIMES PER WEEK)
  2. XANAX [Suspect]
     Active Substance: ALPRAZOLAM
     Dosage: 1 MG, 4X/DAY
  3. XANAX [Suspect]
     Active Substance: ALPRAZOLAM
     Dosage: UNK, 1X/DAY

REACTIONS (1)
  - Insomnia [Unknown]
